FAERS Safety Report 15325901 (Version 1)
Quarter: 2018Q3

REPORT INFORMATION
  Report Type: Spontaneous
  Country: US (occurrence: US)
  Receive Date: 20180828
  Receipt Date: 20180828
  Transmission Date: 20181010
  Serious: No
  Sender: FDA-Public Use
  Company Number: US-PFIZER INC-2018344121

PATIENT

DRUGS (1)
  1. ADVIL [Suspect]
     Active Substance: IBUPROFEN
     Indication: HEADACHE
     Dosage: TWICE ONCE WITH 2 PILLS AND LATER IN THE DAY WITH 4PILLS

REACTIONS (2)
  - Drug ineffective [Unknown]
  - Intentional product misuse [Unknown]
